FAERS Safety Report 7234235-X (Version None)
Quarter: 2011Q1

REPORT INFORMATION
  Report Type: 
  Country: None (occurrence: None)
  Receive Date: 20110119
  Receipt Date: 20110104
  Transmission Date: 20110831
  Serious: No
  Sender: FDA-Public Use
  Company Number: US-B.I. PHARMACEUTICALS,INC./RIDGEFIELD-2011-BP-00586BP

PATIENT
  Sex: Female

DRUGS (2)
  1. ZANTAC 75 [Suspect]
     Indication: DYSPEPSIA
     Dosage: 150 MG
     Route: 048
  2. NORVASC [Concomitant]
     Indication: HYPERTENSION
     Route: 048

REACTIONS (2)
  - CONSTIPATION [None]
  - DRUG INEFFECTIVE [None]
